FAERS Safety Report 10995236 (Version 1)
Quarter: 2015Q2

REPORT INFORMATION
  Report Type: Spontaneous
  Country: BE (occurrence: BE)
  Receive Date: 20150407
  Receipt Date: 20150407
  Transmission Date: 20150821
  Serious: Yes (Hospitalization)
  Sender: FDA-Public Use
  Company Number: BE-SYMPLMED PHARMACEUTICALS-2015SYM00042

PATIENT
  Age: 44 Year
  Sex: Female

DRUGS (4)
  1. ACEON [Suspect]
     Active Substance: PERINDOPRIL ERBUMINE
     Indication: HYPERTENSION
     Dosage: 5 MG, QD
     Route: 048
     Dates: start: 201004
  2. DESO 20 [Concomitant]
     Indication: CONTRACEPTION
     Dosage: UNK
     Dates: start: 201201
  3. COVERSYL PLUS [Suspect]
     Active Substance: INDAPAMIDE\PERINDOPRIL
     Indication: HYPERTENSION
     Dosage: UNK
     Dates: end: 201202
  4. ACEON [Suspect]
     Active Substance: PERINDOPRIL ERBUMINE
     Dosage: 5 MG, QD
     Route: 048
     Dates: start: 201202, end: 201203

REACTIONS (5)
  - Cough [Recovered/Resolved]
  - Gastrointestinal inflammation [Recovered/Resolved]
  - Crohn^s disease [Recovered/Resolved]
  - Colitis [Recovered/Resolved]
  - Intestinal angioedema [Recovered/Resolved]

NARRATIVE: CASE EVENT DATE: 20100707
